FAERS Safety Report 5249471-1 (Version None)
Quarter: 2007Q1

REPORT INFORMATION
  Report Type: 
  Country: None (occurrence: None)
  Receive Date: 20070228
  Receipt Date: 20061114
  Transmission Date: 20070707
  Serious: No
  Sender: FDA-Public Use
  Company Number: US-GLAXOSMITHKLINE-A0627494A

PATIENT
  Age: 26 Year
  Sex: Female

DRUGS (3)
  1. VALTREX [Suspect]
     Dosage: 1G TWICE PER DAY
     Route: 048
  2. L-LYSINE [Concomitant]
  3. BIRTH CONTROL PILLS [Concomitant]

REACTIONS (1)
  - DRUG INEFFECTIVE [None]
